FAERS Safety Report 4798569-0 (Version None)
Quarter: 2005Q4

REPORT INFORMATION
  Report Type: 
  Country: None (occurrence: None)
  Receive Date: 20051014
  Receipt Date: 20050914
  Transmission Date: 20060501
  Serious: Yes (Hospitalization)
  Sender: FDA-Public Use
  Company Number: US-MERCK-0509USA01939

PATIENT
  Age: 38 Year
  Sex: Male
  Weight: 95 kg

DRUGS (4)
  1. VIOXX [Suspect]
     Indication: BACK PAIN
     Route: 048
     Dates: start: 20010517, end: 20010521
  2. VIOXX [Suspect]
     Route: 048
     Dates: start: 20010522, end: 20010529
  3. VIOXX [Suspect]
     Indication: ARTHRALGIA
     Route: 048
     Dates: start: 20010517, end: 20010521
  4. VIOXX [Suspect]
     Route: 048
     Dates: start: 20010522, end: 20010529

REACTIONS (3)
  - BLOOD PRESSURE INCREASED [None]
  - CHEST PAIN [None]
  - MYOCARDIAL INFARCTION [None]
